FAERS Safety Report 6049113-1 (Version None)
Quarter: 2009Q1

REPORT INFORMATION
  Report Type: 
  Country: None (occurrence: None)
  Receive Date: 20090123
  Receipt Date: 20090115
  Transmission Date: 20090719
  Serious: Yes (Other)
  Sender: FDA-Public Use
  Company Number: US-BAYER-200827850NA

PATIENT
  Age: 55 Year
  Sex: Male

DRUGS (5)
  1. MAGNEVIST [Suspect]
     Indication: NUCLEAR MAGNETIC RESONANCE IMAGING
  2. OMNISCAN [Suspect]
     Indication: NUCLEAR MAGNETIC RESONANCE IMAGING
  3. OPTIMARK [Suspect]
     Indication: NUCLEAR MAGNETIC RESONANCE IMAGING
  4. MULTIHANCE [Suspect]
     Indication: NUCLEAR MAGNETIC RESONANCE IMAGING
  5. PROHANCE [Suspect]
     Indication: NUCLEAR MAGNETIC RESONANCE IMAGING

REACTIONS (19)
  - ANHEDONIA [None]
  - ANXIETY [None]
  - BONE PAIN [None]
  - DRY SKIN [None]
  - EMOTIONAL DISTRESS [None]
  - HYPERTENSION [None]
  - INJURY [None]
  - JOINT RANGE OF MOTION DECREASED [None]
  - LOWER EXTREMITY MASS [None]
  - MUSCULAR WEAKNESS [None]
  - NEPHROGENIC SYSTEMIC FIBROSIS [None]
  - OEDEMA PERIPHERAL [None]
  - PAIN [None]
  - PAIN OF SKIN [None]
  - PRURITUS [None]
  - SCAR [None]
  - SKIN BURNING SENSATION [None]
  - SKIN LESION [None]
  - SKIN TIGHTNESS [None]
